FAERS Safety Report 8069254 (Version 3)
Quarter: 2013Q2

REPORT INFORMATION
  Report Type: Report from Study
  Country: JP (occurrence: US)
  Receive Date: 20110804
  Receipt Date: 20130411
  Transmission Date: 20140414
  Serious: Yes (Hospitalization, Other)
  Sender: FDA-Public Use
  Company Number: JP-CELGENEUS-163-CCAZA-11080136

PATIENT
  Age: 71 Year
  Sex: Male
  Weight: 56 kg

DRUGS (7)
  1. VIDAZA [Suspect]
     Indication: MYELODYSPLASTIC SYNDROME
     Dosage: 75 MILLIGRAM/SQ. METER
     Route: 058
     Dates: start: 20110711, end: 20110720
  2. TAKEPRON [Concomitant]
     Indication: PRODUCT USED FOR UNKNOWN INDICATION
     Route: 065
     Dates: start: 20110630, end: 20110730
  3. ZYLORIC [Concomitant]
     Indication: PRODUCT USED FOR UNKNOWN INDICATION
     Route: 065
     Dates: start: 20110630, end: 20110730
  4. NASEA-OD [Concomitant]
     Indication: PRODUCT USED FOR UNKNOWN INDICATION
     Route: 065
     Dates: start: 20110711, end: 20110720
  5. RED BLOOD CELLS TRANSFUSION [Concomitant]
     Indication: TRANSFUSION
     Route: 041
  6. PLATELETS TRANSFUSION [Concomitant]
     Indication: TRANSFUSION
     Route: 041
  7. MAXIPIME [Concomitant]
     Indication: CLOSTRIDIUM BACTERAEMIA
     Route: 065
     Dates: start: 20110720, end: 20110726

REACTIONS (1)
  - Enteritis infectious [Recovered/Resolved]
